FAERS Safety Report 12261523 (Version 2)
Quarter: 2016Q2

REPORT INFORMATION
  Report Type: Spontaneous
  Country: US (occurrence: US)
  Receive Date: 20160412
  Receipt Date: 20160415
  Transmission Date: 20160815
  Serious: Yes (Other)
  Sender: FDA-Public Use
  Company Number: US-ASTRAZENECA-2016SE38326

PATIENT
  Age: 69 Year
  Sex: Female
  Weight: 63.5 kg

DRUGS (13)
  1. TUDORZA PRESSAIR [Suspect]
     Active Substance: ACLIDINIUM BROMIDE
     Indication: CHRONIC OBSTRUCTIVE PULMONARY DISEASE
     Route: 055
     Dates: start: 201212
  2. COMBIVENT [Concomitant]
     Active Substance: ALBUTEROL SULFATE\IPRATROPIUM BROMIDE
     Indication: CHRONIC OBSTRUCTIVE PULMONARY DISEASE
     Dosage: 1 PUFF, FOUR TIMES A DAY
     Route: 055
  3. SPIRIVA [Concomitant]
     Active Substance: TIOTROPIUM BROMIDE MONOHYDRATE
  4. PRILOSEC [Suspect]
     Active Substance: OMEPRAZOLE MAGNESIUM
     Indication: GASTROOESOPHAGEAL REFLUX DISEASE
     Route: 048
  5. PRILOSEC [Suspect]
     Active Substance: OMEPRAZOLE MAGNESIUM
     Indication: GASTROOESOPHAGEAL REFLUX DISEASE
     Route: 048
  6. NITROGLYCERIN. [Concomitant]
     Active Substance: NITROGLYCERIN
     Indication: ANGINA PECTORIS
     Route: 060
  7. IMDUR [Concomitant]
     Active Substance: ISOSORBIDE MONONITRATE
     Indication: CARDIAC DISORDER
     Route: 048
  8. NEXIUM [Suspect]
     Active Substance: ESOMEPRAZOLE MAGNESIUM
     Indication: GASTROOESOPHAGEAL REFLUX DISEASE
     Route: 048
  9. OXYGEN. [Concomitant]
     Active Substance: OXYGEN
     Indication: CHRONIC OBSTRUCTIVE PULMONARY DISEASE
     Route: 055
  10. ALBUTEROL. [Concomitant]
     Active Substance: ALBUTEROL
     Indication: CHRONIC OBSTRUCTIVE PULMONARY DISEASE
     Route: 048
  11. CARDIZEM [Concomitant]
     Active Substance: DILTIAZEM HYDROCHLORIDE
     Indication: CARDIAC DISORDER
     Route: 048
  12. DEXILANT XR [Concomitant]
     Indication: GASTROOESOPHAGEAL REFLUX DISEASE
     Route: 048
  13. NEXIUM [Suspect]
     Active Substance: ESOMEPRAZOLE MAGNESIUM
     Indication: GASTROOESOPHAGEAL REFLUX DISEASE
     Route: 048

REACTIONS (41)
  - Malabsorption [Unknown]
  - Open angle glaucoma [Unknown]
  - Rib fracture [Unknown]
  - Emotional distress [Unknown]
  - Osteochondritis [Unknown]
  - Tooth abscess [Unknown]
  - Secretion discharge [Unknown]
  - Abnormal behaviour [Unknown]
  - Oral candidiasis [Unknown]
  - Humidity intolerance [Unknown]
  - Endocrine disorder [Unknown]
  - Diabetes mellitus [Unknown]
  - Weight increased [Unknown]
  - Tooth loss [Unknown]
  - Memory impairment [Unknown]
  - Drug ineffective [Unknown]
  - Oesophageal disorder [Unknown]
  - Iron deficiency anaemia [Unknown]
  - Costochondritis [Unknown]
  - General physical health deterioration [Unknown]
  - Basedow^s disease [Unknown]
  - Dyspnoea [Unknown]
  - Gastrooesophageal reflux disease [Unknown]
  - Respiratory tract irritation [Unknown]
  - Mental disorder [Unknown]
  - Nervousness [Unknown]
  - Fatigue [Unknown]
  - Aspiration [Unknown]
  - Chronic obstructive pulmonary disease [Unknown]
  - Pain [Unknown]
  - Pneumonia [Unknown]
  - Laryngeal neoplasm [Unknown]
  - Osteoporosis [Unknown]
  - Chondropathy [Unknown]
  - Chest pain [Unknown]
  - Negative thoughts [Unknown]
  - Angina unstable [Unknown]
  - Cough [Unknown]
  - Chest discomfort [Unknown]
  - Blood glucose abnormal [Unknown]
  - Lung disorder [Unknown]

NARRATIVE: CASE EVENT DATE: 2012
